FAERS Safety Report 18277229 (Version 4)
Quarter: 2021Q1

REPORT INFORMATION
  Report Type: Report from Study
  Country: US (occurrence: US)
  Receive Date: 20200917
  Receipt Date: 20210317
  Transmission Date: 20210419
  Serious: No
  Sender: FDA-Public Use
  Company Number: US-BIOVITRUM-2020US4878

PATIENT
  Age: 33 Year
  Sex: Female

DRUGS (1)
  1. KINERET [Suspect]
     Active Substance: ANAKINRA
     Indication: PERICARDIAL DISEASE
     Route: 058
     Dates: start: 20200825

REACTIONS (16)
  - Pain of skin [Unknown]
  - Injection site pain [Unknown]
  - Product dose omission issue [Unknown]
  - Pain in extremity [Unknown]
  - Injection site urticaria [Unknown]
  - Muscle strain [Unknown]
  - Urticaria [Unknown]
  - Pruritus [Unknown]
  - Injection site hypersensitivity [Unknown]
  - Treatment noncompliance [Unknown]
  - Arthralgia [Unknown]
  - Condition aggravated [Unknown]
  - Headache [Unknown]
  - Off label use [Not Recovered/Not Resolved]
  - Gait disturbance [Unknown]
  - Skin induration [Unknown]

NARRATIVE: CASE EVENT DATE: 20200825
